FAERS Safety Report 20723921 (Version 2)
Quarter: 2022Q2

REPORT INFORMATION
  Report Type: Spontaneous
  Country: US (occurrence: US)
  Receive Date: 20220419
  Receipt Date: 20220426
  Transmission Date: 20220721
  Serious: No
  Sender: FDA-Public Use
  Company Number: US-BAYER-2022A052920

PATIENT

DRUGS (1)
  1. MIRALAX [Suspect]
     Active Substance: POLYETHYLENE GLYCOL 3350
     Dosage: UNK

REACTIONS (6)
  - Anorectal disorder [Unknown]
  - Anorectal infection [Unknown]
  - Mucosal dryness [Unknown]
  - Rectal fissure [Unknown]
  - Anal erythema [Unknown]
  - Anorectal discomfort [Unknown]
